FAERS Safety Report 23234143 (Version 5)
Quarter: 2024Q1

REPORT INFORMATION
  Report Type: Report from Study
  Country: ES (occurrence: ES)
  Receive Date: 20231128
  Receipt Date: 20240206
  Transmission Date: 20240409
  Serious: Yes (Death)
  Sender: FDA-Public Use
  Company Number: ES-CLINIGEN-ES-CLI-2023-042685

PATIENT

DRUGS (5)
  1. PROLEUKIN [Suspect]
     Active Substance: ALDESLEUKIN
     Indication: Malignant melanoma
     Dosage: 5 DOSES
     Route: 042
     Dates: end: 20230914
  2. LYMPHOCYTES [Suspect]
     Active Substance: LYMPHOCYTES
     Indication: Malignant melanoma
     Route: 042
  3. CYCLOPHOSPHAMIDE [Suspect]
     Active Substance: CYCLOPHOSPHAMIDE
     Indication: Malignant melanoma
     Route: 042
  4. FLUDARABINE [Suspect]
     Active Substance: FLUDARABINE PHOSPHATE
     Indication: Malignant melanoma
     Route: 042
  5. PEMBROLIZUMAB [Suspect]
     Active Substance: PEMBROLIZUMAB
     Indication: Malignant melanoma

REACTIONS (1)
  - Leukoencephalopathy [Fatal]

NARRATIVE: CASE EVENT DATE: 20231026
